FAERS Safety Report 18122210 (Version 2)
Quarter: 2021Q4

REPORT INFORMATION
  Report Type: Report from Study
  Country: US (occurrence: US)
  Receive Date: 20200807
  Receipt Date: 20211219
  Transmission Date: 20220303
  Serious: Yes (Other)
  Sender: FDA-Public Use
  Company Number: US-CELGENE-USA-20171206410

PATIENT
  Age: 78 Year
  Sex: Male

DRUGS (2)
  1. OTEZLA [Suspect]
     Active Substance: APREMILAST
     Indication: Psoriatic arthropathy
     Dosage: 30 MILLIGRAM, BID
     Route: 048
  2. OTEZLA [Suspect]
     Active Substance: APREMILAST
     Indication: Psoriasis

REACTIONS (4)
  - Cataract [Unknown]
  - Prostatic disorder [Unknown]
  - Psoriasis [Not Recovered/Not Resolved]
  - Product supply issue [Unknown]

NARRATIVE: CASE EVENT DATE: 20171208
